FAERS Safety Report 21099060 (Version 2)
Quarter: 2022Q3

REPORT INFORMATION
  Report Type: Other
  Country: AU (occurrence: None)
  Receive Date: 20220719
  Receipt Date: 20220919
  Transmission Date: 20221027
  Serious: Yes (Other)
  Sender: FDA-Public Use
  Company Number: AU-ROCHE-3057732

PATIENT
  Age: 30 Year
  Sex: Female

DRUGS (1)
  1. OCRELIZUMAB [Suspect]
     Active Substance: OCRELIZUMAB
     Indication: Multiple sclerosis
     Dosage: 2 CYCLES
     Route: 042

REACTIONS (4)
  - Placental insufficiency [Unknown]
  - Oligohydramnios [Unknown]
  - Breech presentation [Unknown]
  - Maternal exposure before pregnancy [Unknown]
